FAERS Safety Report 7415305-X (Version None)
Quarter: 2011Q2

REPORT INFORMATION
  Report Type: 
  Country: None (occurrence: None)
  Receive Date: 20110414
  Receipt Date: 20110404
  Transmission Date: 20111010
  Serious: Yes (Other)
  Sender: FDA-Public Use
  Company Number: FR-TEVA-276407ISR

PATIENT
  Sex: Male

DRUGS (3)
  1. LANSOPRAZOLE [Suspect]
     Indication: ABDOMINAL PAIN
     Dosage: 30 MILLIGRAM;
     Route: 048
     Dates: start: 20110402, end: 20110402
  2. ALUMINUM HYDROXIDE AND MAGNESIUM TRISILICATE [Concomitant]
     Dates: start: 20110401
  3. RANITIDINE [Suspect]
     Indication: ABDOMINAL PAIN
     Dosage: 300 MILLIGRAM;
     Route: 048
     Dates: start: 20110402, end: 20110402

REACTIONS (7)
  - LOSS OF CONSCIOUSNESS [None]
  - RESTLESS LEGS SYNDROME [None]
  - ANXIETY [None]
  - BLOOD BILIRUBIN INCREASED [None]
  - MALAISE [None]
  - TREMOR [None]
  - HAEMATOCHEZIA [None]
